FAERS Safety Report 7337116-6 (Version None)
Quarter: 2011Q1

REPORT INFORMATION
  Report Type: 
  Country: None (occurrence: None)
  Receive Date: 20110224
  Receipt Date: 20110214
  Transmission Date: 20110831
  Serious: Yes (Hospitalization)
  Sender: FDA-Public Use
  Company Number: 027537

PATIENT
  Sex: Female
  Weight: 43 kg

DRUGS (7)
  1. METHOTREXATE [Concomitant]
  2. CLONAZEPAM [Concomitant]
  3. PANTOLOC /01263201/ [Concomitant]
  4. CIMZIA [Suspect]
     Indication: CROHN'S DISEASE
     Dosage: (400 MG 1X2 WEEKS SUBCUTANEOUS) ; (400 MG 1X/2 WEEKS SUBCUTANEOUS)
     Route: 058
     Dates: start: 20090601, end: 20101214
  5. CIMZIA [Suspect]
     Indication: CROHN'S DISEASE
     Dosage: (400 MG 1X2 WEEKS SUBCUTANEOUS) ; (400 MG 1X/2 WEEKS SUBCUTANEOUS)
     Route: 058
     Dates: start: 20110208
  6. BISOPROLOL [Concomitant]
  7. DILAUDID [Concomitant]

REACTIONS (6)
  - WEIGHT DECREASED [None]
  - NAUSEA [None]
  - PHARYNGITIS STREPTOCOCCAL [None]
  - LUNG ABSCESS [None]
  - ABDOMINAL PAIN [None]
  - APHAGIA [None]
